FAERS Safety Report 11054868 (Version 1)
Quarter: 2015Q2

REPORT INFORMATION
  Report Type: Spontaneous
  Country: BR (occurrence: BR)
  Receive Date: 20150422
  Receipt Date: 20150422
  Transmission Date: 20150821
  Serious: Yes (Death)
  Sender: FDA-Public Use
  Company Number: BR-SA-2015SA049406

PATIENT
  Age: 75 Year
  Sex: Male

DRUGS (1)
  1. CLEXANE [Suspect]
     Active Substance: ENOXAPARIN SODIUM
     Indication: THROMBOSIS PROPHYLAXIS
     Dosage: 40MG
     Route: 065
     Dates: start: 20150325, end: 20150326

REACTIONS (2)
  - Sepsis [Fatal]
  - Thrombocytopenia [Recovering/Resolving]
